FAERS Safety Report 15348225 (Version 2)
Quarter: 2018Q4

REPORT INFORMATION
  Report Type: Spontaneous
  Country: US (occurrence: US)
  Receive Date: 20180904
  Receipt Date: 20181009
  Transmission Date: 20190204
  Serious: Yes (Other)
  Sender: FDA-Public Use
  Company Number: US-ALLERGAN-1836551US

PATIENT
  Age: 54 Year
  Sex: Female

DRUGS (2)
  1. CANASA [Suspect]
     Active Substance: MESALAMINE
     Indication: PROCTITIS
     Dosage: 1000 MG, QD
     Route: 054
     Dates: start: 201805
  2. CANASA [Suspect]
     Active Substance: MESALAMINE
     Dosage: 1000 MG, QD
     Route: 054
     Dates: start: 2016

REACTIONS (3)
  - Drug ineffective [Unknown]
  - Rectal haemorrhage [Recovered/Resolved]
  - Proctitis ulcerative [Recovered/Resolved]
